FAERS Safety Report 4970829-X (Version None)
Quarter: 2006Q2

REPORT INFORMATION
  Report Type: 
  Country: None (occurrence: None)
  Receive Date: 20060406
  Receipt Date: 20060323
  Transmission Date: 20061013
  Serious: Yes (Life-Threatening, Hospitalization)
  Sender: FDA-Public Use
  Company Number: US200603005832

PATIENT
  Age: 30 Year
  Sex: Female

DRUGS (1)
  1. ZYPREXA [Suspect]
     Indication: PSYCHOTIC DISORDER
     Dosage: DAILY (1/D)
     Dates: start: 20030101

REACTIONS (3)
  - REHABILITATION THERAPY [None]
  - SUICIDE ATTEMPT [None]
  - WEIGHT INCREASED [None]
